FAERS Safety Report 17277291 (Version 1)
Quarter: 2020Q1

REPORT INFORMATION
  Report Type: Spontaneous
  Country: US (occurrence: US)
  Receive Date: 20200116
  Receipt Date: 20200116
  Transmission Date: 20200409
  Serious: Yes (Death, Hospitalization)
  Sender: FDA-Public Use
  Company Number: US-PFIZER INC-2020018452

PATIENT
  Age: 4 Year
  Sex: Male

DRUGS (4)
  1. ROPIVACAINE HYDROCHLORIDE. [Suspect]
     Active Substance: ROPIVACAINE HYDROCHLORIDE
     Dosage: UNK
     Route: 050
  2. FAT EMULSION NOS [Suspect]
     Active Substance: EGG PHOSPHOLIPIDS\SAFFLOWER OIL\SOYBEAN OIL
     Dosage: UNK
     Route: 051
  3. ROPIVACAINE HYDROCHLORIDE. [Suspect]
     Active Substance: ROPIVACAINE HYDROCHLORIDE
     Dosage: UNK
     Route: 051
  4. FAT EMULSION NOS [Suspect]
     Active Substance: EGG PHOSPHOLIPIDS\SAFFLOWER OIL\SOYBEAN OIL
     Dosage: UNK
     Route: 050

REACTIONS (4)
  - Tachycardia [Fatal]
  - Death [Fatal]
  - Arrhythmia [Fatal]
  - Cardiac arrest [Fatal]

NARRATIVE: CASE EVENT DATE: 2018
